FAERS Safety Report 6796082-2 (Version None)
Quarter: 2010Q2

REPORT INFORMATION
  Report Type: 
  Country: None (occurrence: None)
  Receive Date: 20100625
  Receipt Date: 20100519
  Transmission Date: 20101027
  Serious: Yes (Death, Other)
  Sender: FDA-Public Use
  Company Number: US-BAXTER-2010BH003641

PATIENT
  Age: 59 Year
  Sex: Male

DRUGS (16)
  1. HEPARIN SODIUM [Suspect]
     Indication: CENTRAL VENOUS CATHETERISATION
     Route: 042
     Dates: start: 20080107, end: 20080302
  2. HEPARIN SODIUM [Suspect]
     Route: 042
     Dates: start: 20080107, end: 20080302
  3. HEPARIN SODIUM [Suspect]
     Indication: PULMONARY EMBOLISM
     Route: 042
     Dates: start: 20080107, end: 20080302
  4. HEPARIN SODIUM [Suspect]
     Route: 042
     Dates: start: 20080107, end: 20080302
  5. HEPARIN SODIUM [Suspect]
     Route: 042
     Dates: start: 20080107, end: 20080302
  6. HEPARIN SODIUM [Suspect]
     Route: 042
     Dates: start: 20080107, end: 20080302
  7. HEPARIN SODIUM [Suspect]
     Route: 042
     Dates: start: 20080107, end: 20080302
  8. HEPARIN SODIUM [Suspect]
     Route: 042
     Dates: start: 20080107, end: 20080302
  9. HEPARIN SODIUM [Suspect]
     Route: 042
     Dates: start: 20080107, end: 20080302
  10. ALBUTEROL [Concomitant]
     Indication: DYSPNOEA
     Route: 055
  11. PROVENTIL [Concomitant]
     Indication: DYSPNOEA
     Route: 065
  12. AZITHROMYCIN [Concomitant]
     Indication: DRUG USE FOR UNKNOWN INDICATION
     Route: 065
  13. FLAXSEED OIL [Concomitant]
     Indication: DRUG USE FOR UNKNOWN INDICATION
     Route: 065
  14. FISH OIL [Concomitant]
     Indication: DRUG USE FOR UNKNOWN INDICATION
     Route: 065
  15. HERBAL PREPARATION [Concomitant]
     Indication: DRUG USE FOR UNKNOWN INDICATION
     Route: 048
  16. MULTI-VITAMINS [Concomitant]
     Indication: DRUG USE FOR UNKNOWN INDICATION
     Route: 065

REACTIONS (10)
  - CARDIAC ARREST [None]
  - COLITIS ISCHAEMIC [None]
  - DYSPNOEA [None]
  - GASTROINTESTINAL HAEMORRHAGE [None]
  - HYPOTENSION [None]
  - METASTATIC GASTRIC CANCER [None]
  - PRURITUS [None]
  - RASH [None]
  - RENAL FAILURE [None]
  - SEPSIS [None]
